FAERS Safety Report 18334929 (Version 1)
Quarter: 2020Q4

REPORT INFORMATION
  Report Type: Spontaneous
  Country: DE (occurrence: DE)
  Receive Date: 20201001
  Receipt Date: 20201001
  Transmission Date: 20210113
  Serious: Yes (Death, Life-Threatening, Hospitalization)
  Sender: FDA-Public Use
  Company Number: DE-TEVA-2020-DE-1832601

PATIENT
  Age: 83 Year
  Sex: Female

DRUGS (7)
  1. LEVOTHYROXIN-NATRIUM [Concomitant]
     Active Substance: LEVOTHYROXINE SODIUM
     Dosage: 75 MILLIGRAM DAILY; 1-0-0-0
  2. OLMESARTAN [Concomitant]
     Active Substance: OLMESARTAN
     Dosage: 40 MG
  3. ETORICOXIB. [Concomitant]
     Active Substance: ETORICOXIB
  4. LERCANIDIPIN [Concomitant]
     Active Substance: LERCANIDIPINE
  5. AZATHIOPRIN [Suspect]
     Active Substance: AZATHIOPRINE
     Dosage: DISCONTINUED
     Route: 065
  6. PREDNISOLON [Suspect]
     Active Substance: PREDNISOLONE
     Dosage: 10 MG
     Route: 065
  7. PANTOPRAZOL [Concomitant]
     Active Substance: PANTOPRAZOLE SODIUM
     Dosage: 1 DOSAGE FORMS DAILY; 0-0-1-0

REACTIONS (7)
  - Tenderness [Unknown]
  - Feeling hot [Unknown]
  - Extradural abscess [Unknown]
  - Erythema [Unknown]
  - Intervertebral discitis [Unknown]
  - Peripheral swelling [Unknown]
  - General physical health deterioration [Unknown]
